FAERS Safety Report 9153908 (Version 1)
Quarter: 2013Q1

REPORT INFORMATION
  Report Type: Spontaneous
  Country: SE (occurrence: None)
  Receive Date: 20130205
  Receipt Date: 20130205
  Transmission Date: 20140127
  Serious: Yes (Other)
  Sender: FDA-Public Use
  Company Number: AXC-2013-000030

PATIENT
  Age: 77 Year
  Sex: Male

DRUGS (1)
  1. NITROGLYCERIN [Suspect]
     Indication: PRODUCT USED FOR UNKNOWN INDICATION

REACTIONS (2)
  - Bradycardia [None]
  - Hypotension [None]
